FAERS Safety Report 15471160 (Version 1)
Quarter: 2018Q4

REPORT INFORMATION
  Report Type: Other
  Country: DE (occurrence: DE)
  Receive Date: 20181006
  Receipt Date: 20181006
  Transmission Date: 20190205
  Serious: Yes (Congenital Anomaly, Other)
  Sender: FDA-Public Use
  Company Number: DE-MACLEODS PHARMACEUTICALS US LTD-MAC2018017152

PATIENT

DRUGS (7)
  1. CYCLOSPORINE. [Concomitant]
     Active Substance: CYCLOSPORINE
     Indication: HYPERTENSION
     Dosage: UNK, GESTATION PERIOD AT EXPOSURE FROM 0 TO WEEK 32 PLUS DAY 1 OF GESTA
     Route: 064
  2. FLUVASTATIN [Concomitant]
     Active Substance: FLUVASTATIN SODIUM
     Indication: HYPERTENSION
     Dosage: UNK, GESTATION PERIOD AT EXPOSURE FROM 0 TO WEEK 9 OF GESTATION
     Route: 064
  3. ESOMEPRAZOLE. [Concomitant]
     Active Substance: ESOMEPRAZOLE MAGNESIUM
     Indication: HYPERTENSION
     Dosage: UNK, GESTATION PERIOD AT EXPOSURE FROM 0 TO WEEK 9 OF GESTATION
     Route: 064
  4. PREDNISOLONE. [Concomitant]
     Active Substance: PREDNISOLONE
     Indication: HYPERTENSION
     Dosage: 5 MG, GESTATION PERIOD AT EXPOSURE FROM 0 TO WEEK 32 PLUS DAY 1 OF GESTA
     Route: 064
  5. VALSARTAN 40 MG [Suspect]
     Active Substance: VALSARTAN
     Indication: HYPERTENSION
     Dosage: 40 MILLIGRAM, QD, GESTATION PERIOD AT EXPOSURE FROM 0 TO WEEK 8 PLUS DAY 3 OF GESTAT
     Route: 064
  6. FUROSEMIDE. [Concomitant]
     Active Substance: FUROSEMIDE
     Indication: HYPERTENSION
     Dosage: UNK, GESTATION PERIOD AT EXPOSURE FROM 0 TO WEEK 9 OF GESTATION
     Route: 064
  7. INSULIN [Concomitant]
     Active Substance: INSULIN NOS
     Indication: HYPERTENSION
     Dosage: UNK, GESTATION PERIOD AT EXPOSURE FROM 0 TO WEEK 32 PLUS DAY 1 OF GESTA
     Route: 064

REACTIONS (6)
  - Accidental exposure to product [Unknown]
  - Atrial septal defect [Unknown]
  - Bradycardia neonatal [Unknown]
  - Foetal exposure during pregnancy [Unknown]
  - Convulsion neonatal [Unknown]
  - Pulmonary artery stenosis [Unknown]
